FAERS Safety Report 24712955 (Version 1)
Quarter: 2024Q4

REPORT INFORMATION
  Report Type: Spontaneous
  Country: US (occurrence: None)
  Receive Date: 20241208
  Receipt Date: 20241208
  Transmission Date: 20250114
  Serious: Yes (unspecified)
  Sender: Public
  Company Number: None

PATIENT
  Age: 65 Year
  Sex: Female
  Weight: 51.75 kg

DRUGS (7)
  1. PROLIA [Suspect]
     Active Substance: DENOSUMAB
     Indication: Osteoporosis
     Dosage: OTHER FREQUENCY : EVERY 6 MONTHS;?
     Route: 030
     Dates: start: 20210712, end: 20240321
  2. GABAPENTIN [Concomitant]
     Active Substance: GABAPENTIN
  3. ESTRADIOL [Concomitant]
     Active Substance: ESTRADIOL
  4. VITAMIN D [Concomitant]
     Active Substance: VITAMIN D NOS
  5. CALCIUM [Concomitant]
     Active Substance: CALCIUM
  6. BIOTIN [Concomitant]
     Active Substance: BIOTIN
  7. IRON [Concomitant]
     Active Substance: IRON

REACTIONS (1)
  - Osteonecrosis of jaw [None]

NARRATIVE: CASE EVENT DATE: 20240628
